FAERS Safety Report 8435000-8 (Version None)
Quarter: 2012Q2

REPORT INFORMATION
  Report Type: 
  Country: None (occurrence: None)
  Receive Date: 20120614
  Receipt Date: 20120611
  Transmission Date: 20120825
  Serious: No
  Sender: FDA-Public Use
  Company Number: US-PFIZER INC-2012141359

PATIENT
  Sex: Female
  Weight: 44 kg

DRUGS (2)
  1. GABAPENTIN [Suspect]
     Indication: PERIPHERAL NERVE OPERATION
     Dosage: 300 MG, 3X/DAY
     Dates: start: 20040101, end: 20040101
  2. GABAPENTIN [Suspect]
     Indication: CYSTITIS INTERSTITIAL

REACTIONS (1)
  - INSOMNIA [None]
